FAERS Safety Report 7653907-6 (Version None)
Quarter: 2011Q3

REPORT INFORMATION
  Report Type: 
  Country: None (occurrence: None)
  Receive Date: 20110803
  Receipt Date: 20110722
  Transmission Date: 20111222
  Serious: Yes (Hospitalization)
  Sender: FDA-Public Use
  Company Number: US-ELI_LILLY_AND_COMPANY-US201107006942

PATIENT
  Sex: Male

DRUGS (1)
  1. HUMULIN 70/30 [Suspect]
     Indication: DIABETES MELLITUS
     Dosage: 30 U, BID
     Dates: start: 20080101

REACTIONS (5)
  - DEVICE OCCLUSION [None]
  - PERIPHERAL COLDNESS [None]
  - OEDEMA PERIPHERAL [None]
  - ERYTHEMA [None]
  - CARDIOVASCULAR INSUFFICIENCY [None]
